FAERS Safety Report 5577160-2 (Version None)
Quarter: 2007Q4

REPORT INFORMATION
  Report Type: 
  Country: None (occurrence: None)
  Receive Date: 20071228
  Receipt Date: 20071219
  Transmission Date: 20080405
  Serious: Yes (Death)
  Sender: FDA-Public Use
  Company Number: JP-PFIZER INC-2007090469

PATIENT
  Sex: Female
  Weight: 50 kg

DRUGS (9)
  1. CYTOTEC [Suspect]
     Indication: PROPHYLAXIS AGAINST GASTROINTESTINAL ULCER
     Route: 048
     Dates: start: 20071002, end: 20071009
  2. PREDONINE [Concomitant]
     Route: 048
  3. ALLEGRA [Concomitant]
     Route: 048
  4. POLARAMINE [Concomitant]
     Route: 048
  5. MUCOSTA [Concomitant]
     Route: 048
  6. BRUFEN [Concomitant]
     Dosage: FREQ:3 DAILY
     Route: 048
     Dates: start: 20071002, end: 20071009
  7. MEFENAMIC ACID [Concomitant]
     Route: 048
     Dates: start: 20071001, end: 20071002
  8. LOXONIN [Concomitant]
     Route: 048
     Dates: start: 20070903, end: 20071001
  9. PYRINAZIN [Concomitant]
     Route: 048

REACTIONS (3)
  - EOSINOPHIL COUNT INCREASED [None]
  - HEPATIC ENZYME INCREASED [None]
  - HEPATITIS FULMINANT [None]
